FAERS Safety Report 16369390 (Version 3)
Quarter: 2019Q3

REPORT INFORMATION
  Report Type: Spontaneous
  Country: JP (occurrence: JP)
  Receive Date: 20190529
  Receipt Date: 20190718
  Transmission Date: 20191004
  Serious: Yes (Other)
  Sender: FDA-Public Use
  Company Number: JP-ASTRAZENECA-2019SE77873

PATIENT
  Age: 65 Year
  Sex: Female

DRUGS (1)
  1. LYNPARZA [Suspect]
     Active Substance: OLAPARIB
     Indication: OVARIAN CANCER
     Route: 048
     Dates: start: 20181221, end: 20190118

REACTIONS (2)
  - Interstitial lung disease [Recovered/Resolved with Sequelae]
  - Metastases to lymph nodes [Unknown]

NARRATIVE: CASE EVENT DATE: 20190118
